FAERS Safety Report 9258792 (Version 1)
Quarter: 2013Q2

REPORT INFORMATION
  Report Type: Report from Study
  Country: CA (occurrence: CA)
  Receive Date: 20130426
  Receipt Date: 20130426
  Transmission Date: 20140414
  Serious: Yes (Other)
  Sender: FDA-Public Use
  Company Number: CA-JNJFOC-20130412317

PATIENT
  Age: 46 Year
  Sex: Female
  Weight: 49.1 kg

DRUGS (18)
  1. REMICADE [Suspect]
     Indication: CROHN^S DISEASE
     Route: 042
     Dates: start: 20130418
  2. REMICADE [Suspect]
     Indication: CROHN^S DISEASE
     Route: 042
     Dates: start: 20100427
  3. DILAUDID [Concomitant]
     Route: 065
  4. ZOPICLONE [Concomitant]
     Route: 065
  5. ACTONEL [Concomitant]
     Route: 065
  6. VITAMIN B12 [Concomitant]
     Route: 065
  7. MICRONOR [Concomitant]
     Route: 065
  8. AMITRIPTYLINE [Concomitant]
     Route: 065
  9. WARFARIN [Concomitant]
     Route: 065
  10. GABAPENTIN [Concomitant]
     Route: 065
  11. SYNTHROID [Concomitant]
     Route: 065
  12. MULTIVITAMINS [Concomitant]
     Route: 065
  13. ZINC [Concomitant]
     Route: 065
  14. REACTINE [Concomitant]
     Route: 065
  15. VITAMIN D [Concomitant]
     Route: 065
  16. VITAMIN K [Concomitant]
     Route: 065
  17. MILK OF MAGNESIA [Concomitant]
     Route: 065
  18. TYLENOL [Concomitant]
     Route: 065

REACTIONS (3)
  - Pulmonary embolism [Unknown]
  - Headache [Not Recovered/Not Resolved]
  - Infusion related reaction [Not Recovered/Not Resolved]
